FAERS Safety Report 17989180 (Version 1)
Quarter: 2020Q3

REPORT INFORMATION
  Report Type: Spontaneous
  Country: FR (occurrence: FR)
  Receive Date: 20200707
  Receipt Date: 20200707
  Transmission Date: 20201103
  Serious: Yes (Other)
  Sender: FDA-Public Use
  Company Number: FR-009507513-2007FRA000153

PATIENT
  Age: 56 Year
  Sex: Female
  Weight: 68 kg

DRUGS (1)
  1. DIPROSTENE [Suspect]
     Active Substance: BETAMETHASONE DIPROPIONATE\BETAMETHASONE SODIUM PHOSPHATE
     Indication: PAIN
     Dosage: 1 DOSAGE FORM
     Route: 014
     Dates: start: 20200617, end: 20200617

REACTIONS (8)
  - Face oedema [Not Recovered/Not Resolved]
  - Headache [Not Recovered/Not Resolved]
  - Hyperhidrosis [Not Recovered/Not Resolved]
  - Acne [Not Recovered/Not Resolved]
  - Pruritus [Not Recovered/Not Resolved]
  - Rash erythematous [Not Recovered/Not Resolved]
  - Erythema [Not Recovered/Not Resolved]
  - Thermal burn [Not Recovered/Not Resolved]

NARRATIVE: CASE EVENT DATE: 20200618
